FAERS Safety Report 4373676-5 (Version None)
Quarter: 2004Q1

REPORT INFORMATION
  Report Type: 
  Country: None (occurrence: None)
  Receive Date: 20040305
  Receipt Date: 20031120
  Transmission Date: 20041129
  Serious: Yes (Other)
  Sender: FDA-Public Use
  Company Number: 2003UW15440

PATIENT
  Age: 69 Year
  Sex: Female
  Weight: 82.5547 kg

DRUGS (3)
  1. CRESTOR [Suspect]
     Indication: BLOOD CHOLESTEROL INCREASED
     Dosage: 20 MG PO
     Route: 048
  2. NORVASC [Concomitant]
  3. ATACAND [Concomitant]

REACTIONS (4)
  - DYSPEPSIA [None]
  - ERYTHEMA [None]
  - HEADACHE [None]
  - MYALGIA [None]
